FAERS Safety Report 10011645 (Version 3)
Quarter: 2014Q2

REPORT INFORMATION
  Report Type: Report from Study
  Country: CZ (occurrence: CZ)
  Receive Date: 20140314
  Receipt Date: 20140416
  Transmission Date: 20141212
  Serious: Yes (Hospitalization, Other)
  Sender: FDA-Public Use
  Company Number: CZ-BRISTOL-MYERS SQUIBB COMPANY-19220300

PATIENT
  Age: 65 Year
  Sex: Male
  Weight: 92 kg

DRUGS (14)
  1. BLINDED: BYDUREON [Suspect]
     Indication: TYPE 2 DIABETES MELLITUS
     Dosage: INTERR: ON 01-AUG-2013
     Dates: start: 20120201
  2. WARFARIN SODIUM [Suspect]
     Indication: DEEP VEIN THROMBOSIS
  3. WARFARIN SODIUM [Suspect]
     Indication: PULMONARY EMBOLISM
  4. BLINDED: PLACEBO [Suspect]
     Indication: TYPE 2 DIABETES MELLITUS
     Dates: start: 20120201, end: 20130801
  5. ROSUVASTATIN [Concomitant]
     Indication: CORONARY ARTERY DISEASE
     Dosage: 20MG
     Dates: start: 20130211
  6. ROSUVASTATIN [Concomitant]
     Indication: HYPERCHOLESTEROLAEMIA
     Dosage: 20MG
     Dates: start: 20130211
  7. BISOPROLOL [Concomitant]
     Indication: CORONARY ARTERY DISEASE
     Dosage: 5 MG
  8. BISOPROLOL [Concomitant]
     Indication: HYPERTENSION
     Dosage: 5 MG
  9. RAMIPRIL [Concomitant]
     Indication: HYPERTENSION
  10. ASPIRIN [Concomitant]
     Indication: CORONARY ARTERY DISEASE
  11. OMEPRAZOLE [Concomitant]
     Indication: PROPHYLAXIS
  12. OMEPRAZOLE [Concomitant]
     Indication: PEPTIC ULCER
  13. GLYCLAZIDE [Concomitant]
     Indication: TYPE 2 DIABETES MELLITUS
     Dosage: TABLETS?ALSO TKEN IN 30MG DOSE
     Route: 048
  14. SAXAGLIPTIN [Concomitant]
     Indication: TYPE 2 DIABETES MELLITUS
     Dosage: TABS
     Route: 048

REACTIONS (3)
  - Renal cyst haemorrhage [Recovered/Resolved]
  - Spinal fracture [Recovered/Resolved]
  - Pancreatic mass [Recovered/Resolved with Sequelae]
